FAERS Safety Report 6095114-7 (Version None)
Quarter: 2009Q1

REPORT INFORMATION
  Report Type: 
  Country: None (occurrence: None)
  Receive Date: 20090227
  Receipt Date: 20080131
  Transmission Date: 20090719
  Serious: No
  Sender: FDA-Public Use
  Company Number: A0704390A

PATIENT
  Age: 56 Year
  Sex: Female

DRUGS (2)
  1. LAMICTAL [Suspect]
     Indication: BIPOLAR DISORDER
     Dosage: 25MG THREE TIMES PER WEEK
     Route: 048
     Dates: start: 20071101, end: 20080105
  2. NO CONCURRENT MEDICATION [Concomitant]

REACTIONS (5)
  - BACTERIAL INFECTION [None]
  - DRUG INEFFECTIVE [None]
  - NASOPHARYNGITIS [None]
  - OROPHARYNGEAL PAIN [None]
  - RASH [None]
